FAERS Safety Report 5411868-4 (Version None)
Quarter: 2007Q3

REPORT INFORMATION
  Report Type: 
  Country: None (occurrence: None)
  Receive Date: 20070713
  Receipt Date: 20070316
  Transmission Date: 20080115
  Serious: No
  Sender: FDA-Public Use
  Company Number: 2007SP000938

PATIENT
  Age: 69 Year
  Sex: Female
  Weight: 68.0396 kg

DRUGS (4)
  1. LUNESTA [Suspect]
     Indication: INSOMNIA
     Dosage: 2 MG;ORAL, 2 MG;1X;ORAL, 2 MG;1X;ORAL
     Route: 048
     Dates: start: 20070314, end: 20070314
  2. LUNESTA [Suspect]
     Indication: INSOMNIA
     Dosage: 2 MG;ORAL, 2 MG;1X;ORAL, 2 MG;1X;ORAL
     Route: 048
     Dates: start: 20070315, end: 20070315
  3. LUNESTA [Suspect]
     Indication: INSOMNIA
     Dosage: 2 MG;ORAL, 2 MG;1X;ORAL, 2 MG;1X;ORAL
     Route: 048
     Dates: start: 20070313
  4. TRIAZOLAM [Concomitant]

REACTIONS (3)
  - EYE PRURITUS [None]
  - INSOMNIA [None]
  - SOMNOLENCE [None]
